FAERS Safety Report 4552791-7 (Version None)
Quarter: 2005Q1

REPORT INFORMATION
  Report Type: 
  Country: None (occurrence: None)
  Receive Date: 20050112
  Receipt Date: 20041228
  Transmission Date: 20050727
  Serious: Yes (Hospitalization, Other)
  Sender: FDA-Public Use
  Company Number: USA041286997

PATIENT
  Age: 68 Year
  Sex: Female

DRUGS (1)
  1. HUMULIN 70/30 [Suspect]

REACTIONS (4)
  - LACERATION [None]
  - SCAB [None]
  - SKIN ULCER [None]
  - WEIGHT DECREASED [None]
